APPROVED DRUG PRODUCT: DOXYCYCLINE HYCLATE
Active Ingredient: DOXYCYCLINE HYCLATE
Strength: EQ 100MG BASE
Dosage Form/Route: TABLET;ORAL
Application: A062392 | Product #002
Applicant: WATSON LABORATORIES INC
Approved: Mar 31, 1983 | RLD: No | RS: No | Type: DISCN